FAERS Safety Report 13009731 (Version 2)
Quarter: 2017Q3

REPORT INFORMATION
  Report Type: Spontaneous
  Country: US (occurrence: US)
  Receive Date: 20161208
  Receipt Date: 20170825
  Transmission Date: 20171127
  Serious: Yes (Other)
  Sender: FDA-Public Use
  Company Number: US-BAYER-2016-227931

PATIENT
  Age: 26 Year
  Sex: Female
  Weight: 47.62 kg

DRUGS (1)
  1. MIRENA [Suspect]
     Active Substance: LEVONORGESTREL
     Indication: CONTRACEPTION
     Dosage: 20 MCG/24HR, CONT
     Route: 015
     Dates: start: 20091203, end: 20150303

REACTIONS (8)
  - Device difficult to use [Unknown]
  - Abdominal pain lower [Unknown]
  - Pain [Unknown]
  - Discomfort [Unknown]
  - Embedded device [Unknown]
  - Depression [Unknown]
  - Device difficult to use [Unknown]
  - Anxiety [None]

NARRATIVE: CASE EVENT DATE: 20141107
